FAERS Safety Report 16155861 (Version 4)
Quarter: 2019Q2

REPORT INFORMATION
  Report Type: Report from Study
  Country: None (occurrence: ES)
  Receive Date: 20190404
  Receipt Date: 20190503
  Transmission Date: 20190711
  Serious: No
  Sender: FDA-Public Use
  Company Number: ES-ABBVIE-19S-144-2731685-00

PATIENT
  Age: 59 Year
  Sex: Female
  Weight: 65 kg

DRUGS (3)
  1. DUODOPA [Suspect]
     Active Substance: CARBIDOPA\LEVODOPA
     Route: 050
     Dates: start: 20180524
  2. DUODOPA [Suspect]
     Active Substance: CARBIDOPA\LEVODOPA
     Indication: PARKINSON^S DISEASE
     Dosage: 1 CARTRIDGE A DAY?MORNING DOSE:12.5ML?CONTINUOUS DOSE:4.7ML/H?EXTRA DOSE:1.3ML
     Route: 050
     Dates: start: 20180521, end: 201805
  3. DUODOPA [Suspect]
     Active Substance: CARBIDOPA\LEVODOPA
     Dosage: DOSE REDUCTION.??4.7 ML PER HOUR
     Route: 050

REACTIONS (4)
  - Device dislocation [Recovered/Resolved]
  - Drug ineffective [Recovering/Resolving]
  - On and off phenomenon [Recovered/Resolved]
  - Off label use [Unknown]

NARRATIVE: CASE EVENT DATE: 201903
